FAERS Safety Report 7308627-4 (Version None)
Quarter: 2011Q1

REPORT INFORMATION
  Report Type: 
  Country: None (occurrence: None)
  Receive Date: 20110223
  Receipt Date: 20110209
  Transmission Date: 20110831
  Serious: Yes (Hospitalization)
  Sender: FDA-Public Use
  Company Number: FR-MERCK-1012FRA00042

PATIENT
  Age: 52 Year
  Sex: Male

DRUGS (4)
  1. CEFIXIME [Suspect]
     Indication: URINARY TRACT INFECTION
     Route: 048
     Dates: start: 20100717, end: 20100725
  2. JANUVIA [Suspect]
     Indication: TYPE 2 DIABETES MELLITUS
     Route: 048
     Dates: start: 20100724, end: 20100812
  3. AMOXICILLIN [Concomitant]
     Indication: URINARY TRACT INFECTION
     Route: 065
     Dates: start: 20100801, end: 20100826
  4. KETOPROFEN [Suspect]
     Route: 065
     Dates: start: 20100724, end: 20100730

REACTIONS (4)
  - NEUTROPENIA [None]
  - RASH MACULO-PAPULAR [None]
  - EOSINOPHILIA [None]
  - PRURITUS [None]
